FAERS Safety Report 9826820 (Version 1)
Quarter: 2013Q4

REPORT INFORMATION
  Report Type: Spontaneous
  Country: US (occurrence: None)
  Receive Date: 20131112
  Receipt Date: 20131112
  Transmission Date: 20140711
  Serious: Yes (Other)
  Sender: FDA-Public Use
  Company Number: US-012604

PATIENT
  Age: 48 Year
  Sex: Male
  Weight: 357.44 kg

DRUGS (1)
  1. PICO-SALAX [Suspect]
     Indication: BOWEL PREPARATION
     Dosage: TOOK TWO PACKETS, BUT MIXED CLEAR LIQUIDS WITH KNOX GELATIN ORAL
     Dates: start: 20130805, end: 20130806

REACTIONS (1)
  - Drug ineffective [None]
